FAERS Safety Report 23740934 (Version 1)
Quarter: 2024Q2

REPORT INFORMATION
  Report Type: Spontaneous
  Country: CN (occurrence: CN)
  Receive Date: 20240415
  Receipt Date: 20240415
  Transmission Date: 20240717
  Serious: Yes (Death)
  Sender: FDA-Public Use
  Company Number: CN-TEYRO-2024-TY-000104

PATIENT

DRUGS (5)
  1. GEMCITABINE [Suspect]
     Active Substance: GEMCITABINE
     Indication: Angiocentric lymphoma
     Dosage: 1 G/M2 ON DAYS 1 AND 8, EVERY 3 WEEKS FOR SIX CYCLES VIA INTRAVENOUS USE
     Route: 042
  2. SINTILIMAB [Suspect]
     Active Substance: SINTILIMAB
     Indication: Angiocentric lymphoma
     Dosage: 200 MG ON DAY 1, EVERY 3 WEEKS FOR SIX CYCLES VIA INTRAVENOUS USE
     Route: 042
  3. SINTILIMAB [Suspect]
     Active Substance: SINTILIMAB
     Dosage: 200 MG EVERY 3 WEEKS FOR UP TO 2 YEARS VIA INTRAVENOUS USE
     Route: 042
  4. PEGASPARGASE [Suspect]
     Active Substance: PEGASPARGASE
     Indication: Angiocentric lymphoma
     Dosage: 2000 U/M2 ON DAY 1 VIA INTRAMUSCULAR USE, EVERY 3 WEEKS FOR SIX CYCLES
     Route: 030
  5. OXALIPLATIN [Suspect]
     Active Substance: OXALIPLATIN
     Indication: Angiocentric lymphoma
     Dosage: 130 MG/M2 ON DAY 1, EVERY 3 WEEKS FOR SIX CYCLES VIA INTRAVENOUS USE
     Route: 042

REACTIONS (2)
  - Neoplasm progression [Fatal]
  - Off label use [Unknown]
